FAERS Safety Report 15858170 (Version 6)
Quarter: 2019Q1

REPORT INFORMATION
  Report Type: Spontaneous
  Country: GB (occurrence: GB)
  Receive Date: 20190123
  Receipt Date: 20190214
  Transmission Date: 20190417
  Serious: Yes (Death, Life-Threatening, Other)
  Sender: FDA-Public Use
  Company Number: GB-PFIZER INC-2019029057

PATIENT
  Age: 80 Year
  Sex: Male

DRUGS (4)
  1. CYCLOPHOSPHAMIDE. [Suspect]
     Active Substance: CYCLOPHOSPHAMIDE
     Indication: OPTIC NEURITIS
     Dosage: UNK, CYCLIC (PULSED)
     Route: 042
  2. METHYLPREDNISOLONE SODIUM SUCCINATE. [Suspect]
     Active Substance: METHYLPREDNISOLONE SODIUM SUCCINATE
     Indication: OPTIC NEURITIS
     Dosage: UNK (PULSED)
     Route: 042
  3. PREDNISOLONE. [Suspect]
     Active Substance: PREDNISOLONE
     Indication: OPTIC NEURITIS
     Dosage: UNK (REINSTITUTION OF STEROIDS)
     Route: 048
  4. SALBUTAMOL [Concomitant]
     Active Substance: ALBUTEROL
     Indication: ASTHMA
     Dosage: UNK
     Route: 055

REACTIONS (12)
  - Blindness [Unknown]
  - Paraesthesia [Unknown]
  - Somnolence [Unknown]
  - Cerebral aspergillosis [Fatal]
  - Optic neuropathy [Fatal]
  - Aspergillus infection [Fatal]
  - Urinary incontinence [Unknown]
  - Facial paresis [Unknown]
  - Ophthalmoplegia [Unknown]
  - Dysarthria [Unknown]
  - Ataxia [Unknown]
  - Cognitive disorder [Unknown]
